FAERS Safety Report 18200859 (Version 20)
Quarter: 2022Q4

REPORT INFORMATION
  Report Type: Report from Study
  Country: US (occurrence: US)
  Receive Date: 20200826
  Receipt Date: 20221217
  Transmission Date: 20230113
  Serious: Yes (Other)
  Sender: FDA-Public Use
  Company Number: US-SHIRE-US202027640

PATIENT
  Age: 61 Year
  Sex: Female
  Weight: 45 kg

DRUGS (23)
  1. HUMAN IMMUNOGLOBULIN G [Suspect]
     Active Substance: HUMAN IMMUNOGLOBULIN G
     Indication: Immunodeficiency common variable
     Dosage: 10 GRAM, Q2WEEKS
     Route: 058
     Dates: start: 20190206
  2. HUMAN IMMUNOGLOBULIN G [Suspect]
     Active Substance: HUMAN IMMUNOGLOBULIN G
     Indication: Primary immunodeficiency syndrome
     Dosage: 10 GRAM, Q2WEEKS
     Route: 058
     Dates: start: 20190211
  3. HUMAN IMMUNOGLOBULIN G [Suspect]
     Active Substance: HUMAN IMMUNOGLOBULIN G
     Dosage: 10 GRAM, Q2WEEKS
     Route: 058
     Dates: start: 20200519
  4. COVID-19 VACCINE NOS [Suspect]
     Active Substance: COVID-19 VACCINE NOS
     Indication: COVID-19 immunisation
     Dosage: UNK
     Route: 065
     Dates: start: 20220404
  5. DIPHENHYDRAMINE [Concomitant]
     Active Substance: DIPHENHYDRAMINE
     Route: 065
  6. EPINEPHRINE [Concomitant]
     Active Substance: EPINEPHRINE
     Route: 065
  7. Lmx [Concomitant]
     Route: 065
  8. INCRUSE ELLIPTA [Concomitant]
     Active Substance: UMECLIDINIUM BROMIDE
     Route: 065
  9. PROZAC [Concomitant]
     Active Substance: FLUOXETINE HYDROCHLORIDE
     Route: 065
  10. ALBUTEROL\IPRATROPIUM [Concomitant]
     Active Substance: ALBUTEROL\IPRATROPIUM
     Route: 065
  11. TRINTELLIX [Concomitant]
     Active Substance: VORTIOXETINE HYDROBROMIDE
     Route: 065
  12. LIDOCAINE [Concomitant]
     Active Substance: LIDOCAINE
     Route: 065
  13. FLUOXETINE HYDROCHLORIDE [Concomitant]
     Active Substance: FLUOXETINE HYDROCHLORIDE
  14. SYMBICORT [Concomitant]
     Active Substance: BUDESONIDE\FORMOTEROL FUMARATE DIHYDRATE
  15. ONDANSETRON HCL [Concomitant]
     Active Substance: ONDANSETRON HYDROCHLORIDE
  16. SPIRIVA RESPIMAT [Concomitant]
     Active Substance: TIOTROPIUM BROMIDE
  17. PREDNISONE [Concomitant]
     Active Substance: PREDNISONE
  18. PROAIR HFA [Concomitant]
     Active Substance: ALBUTEROL SULFATE
  19. DIAZEPAM [Concomitant]
     Active Substance: DIAZEPAM
  20. VALACYCLOVIR [Concomitant]
     Active Substance: VALACYCLOVIR HYDROCHLORIDE
  21. PROAIR HFA [Concomitant]
     Active Substance: ALBUTEROL SULFATE
     Route: 065
  22. BACTRIM [Concomitant]
     Active Substance: SULFAMETHOXAZOLE\TRIMETHOPRIM
  23. FIBER [Concomitant]
     Active Substance: PSYLLIUM HUSK

REACTIONS (34)
  - Gastrointestinal obstruction [Unknown]
  - Neuropathy peripheral [Unknown]
  - Ophthalmic herpes zoster [Unknown]
  - Food allergy [Unknown]
  - Sinusitis [Unknown]
  - Endometriosis [Unknown]
  - Osteoporosis [Unknown]
  - Adverse drug reaction [Unknown]
  - Scar [Unknown]
  - Gastrointestinal scarring [Unknown]
  - Hypersomnia [Unknown]
  - Influenza [Unknown]
  - Herpes zoster [Unknown]
  - COVID-19 immunisation [Unknown]
  - Gastrointestinal disorder [Unknown]
  - Candida infection [Unknown]
  - Abdominal pain [Unknown]
  - Infusion site extravasation [Not Recovered/Not Resolved]
  - Lethargy [Recovered/Resolved]
  - Urticaria [Unknown]
  - Fatigue [Unknown]
  - Vomiting [Recovering/Resolving]
  - Diarrhoea [Recovering/Resolving]
  - Malaise [Recovered/Resolved]
  - Asthenia [Recovered/Resolved]
  - Drug ineffective [Unknown]
  - Insurance issue [Unknown]
  - Fall [Unknown]
  - Patella fracture [Unknown]
  - Orthosis user [Unknown]
  - Sinus disorder [Unknown]
  - Dermatitis contact [Unknown]
  - Device infusion issue [Unknown]
  - Product dose omission issue [Unknown]

NARRATIVE: CASE EVENT DATE: 20210813
